FAERS Safety Report 8989663 (Version 1)
Quarter: 2012Q4

REPORT INFORMATION
  Report Type: Report from Study
  Country: GB (occurrence: GB)
  Receive Date: 20121228
  Receipt Date: 20121228
  Transmission Date: 20130627
  Serious: Yes (Hospitalization)
  Sender: FDA-Public Use
  Company Number: GB-AMGEN-GBRCT2012083291

PATIENT
  Age: 32 Year
  Sex: Male
  Weight: 123.6 kg

DRUGS (3)
  1. ETANERCEPT [Suspect]
     Indication: PRODUCT USED FOR UNKNOWN INDICATION
     Dosage: 50 mg, qwk
     Dates: start: 20100823
  2. BISOPROLOL [Concomitant]
     Dosage: UNK
     Dates: start: 20100308
  3. EPADERM [Concomitant]
     Dosage: UNK
     Dates: start: 20100308

REACTIONS (1)
  - Localised infection [Recovered/Resolved]
